FAERS Safety Report 7717256-X (Version None)
Quarter: 2011Q3

REPORT INFORMATION
  Report Type: 
  Country: None (occurrence: None)
  Receive Date: 20110826
  Receipt Date: 20110826
  Transmission Date: 20111222
  Serious: Yes (Other)
  Sender: FDA-Public Use
  Company Number: None

PATIENT
  Sex: Male

DRUGS (1)
  1. ENBREL [Suspect]
     Dosage: 50MG ONCE A WK SUB-Q
     Route: 058
     Dates: start: 20110803

REACTIONS (2)
  - TINNITUS [None]
  - DEAFNESS UNILATERAL [None]
